FAERS Safety Report 16890201 (Version 1)
Quarter: 2019Q4

REPORT INFORMATION
  Report Type: Spontaneous
  Country: US (occurrence: US)
  Receive Date: 20191004
  Receipt Date: 20191004
  Transmission Date: 20200122
  Serious: Yes (Disabling)
  Sender: FDA-Public Use
  Company Number: None

PATIENT
  Age: 37 Year
  Sex: Female
  Weight: 60.3 kg

DRUGS (5)
  1. NEXPLANON [Suspect]
     Active Substance: ETONOGESTREL
     Indication: BLOOD OESTROGEN DECREASED
     Dosage: ?          QUANTITY:1 1;OTHER FREQUENCY:3 YEARS;?
     Route: 058
     Dates: start: 20180924, end: 20191003
  2. ADDERALL [Concomitant]
     Active Substance: AMPHETAMINE ASPARTATE\AMPHETAMINE SULFATE\DEXTROAMPHETAMINE SACCHARATE\DEXTROAMPHETAMINE SULFATE
  3. GINGER ROOT [Concomitant]
     Active Substance: GINGER
  4. NEXPLANON [Suspect]
     Active Substance: ETONOGESTREL
     Indication: PELVIC PAIN
     Dosage: ?          QUANTITY:1 1;OTHER FREQUENCY:3 YEARS;?
     Route: 058
     Dates: start: 20180924, end: 20191003
  5. TUMERIC [Concomitant]
     Active Substance: HERBALS\TURMERIC

REACTIONS (17)
  - Dizziness [None]
  - Breast pain [None]
  - Decreased appetite [None]
  - Asthenia [None]
  - Mood swings [None]
  - Feeling abnormal [None]
  - Fatigue [None]
  - Insomnia [None]
  - Depressed mood [None]
  - Dysphagia [None]
  - Dysarthria [None]
  - Headache [None]
  - Nervousness [None]
  - Vision blurred [None]
  - Weight increased [None]
  - Depression [None]
  - Back pain [None]

NARRATIVE: CASE EVENT DATE: 20191004
